FAERS Safety Report 13284791 (Version 1)
Quarter: 2017Q1

REPORT INFORMATION
  Report Type: Spontaneous
  Country: US (occurrence: US)
  Receive Date: 20170301
  Receipt Date: 20170301
  Transmission Date: 20170428
  Serious: Yes (Disabling)
  Sender: FDA-Public Use
  Company Number: None

PATIENT
  Age: 90 Year
  Sex: Male
  Weight: 59.02 kg

DRUGS (6)
  1. GLUCONORM [Concomitant]
     Active Substance: REPAGLINIDE
  2. OMEGA 3 [Concomitant]
     Active Substance: OMEGA-3 FATTY ACIDS
  3. ASA [Concomitant]
     Active Substance: ASPIRIN
  4. RAPAFLO [Suspect]
     Active Substance: SILODOSIN
     Indication: BLADDER DISORDER
     Dosage: ?          QUANTITY:AKING OR , _ _,, I;?
     Route: 048
     Dates: start: 20150331, end: 20150615
  5. THYROID HORMONES [Concomitant]
     Active Substance: UNSPECIFIED INGREDIENT
  6. GLUCOSAMINE [Concomitant]
     Active Substance: GLUCOSAMINE

REACTIONS (3)
  - Functional gastrointestinal disorder [None]
  - Pain [None]
  - Weight decreased [None]

NARRATIVE: CASE EVENT DATE: 201504
